FAERS Safety Report 5788641-0 (Version None)
Quarter: 2008Q2

REPORT INFORMATION
  Report Type: 
  Country: None (occurrence: None)
  Receive Date: 20080625
  Receipt Date: 20080625
  Transmission Date: 20081010
  Serious: Yes (Other)
  Sender: FDA-Public Use
  Company Number: None

PATIENT
  Sex: Female
  Weight: 122.4712 kg

DRUGS (2)
  1. AMBIEN [Suspect]
     Indication: INSOMNIA
     Dosage: 5 MG ONCE QHS PO
     Route: 048
     Dates: start: 20080607
  2. AMBIEN [Suspect]
     Indication: INSOMNIA
     Dosage: 5 MG ONCE QHS PO
     Route: 048
     Dates: start: 20080611

REACTIONS (3)
  - DYSGEUSIA [None]
  - DYSPHAGIA [None]
  - OEDEMA MOUTH [None]
